FAERS Safety Report 8208934-7 (Version None)
Quarter: 2012Q1

REPORT INFORMATION
  Report Type: 
  Country: None (occurrence: None)
  Receive Date: 20120314
  Receipt Date: 20120306
  Transmission Date: 20120608
  Serious: Yes (Death, Other)
  Sender: FDA-Public Use
  Company Number: JP-ROCHE-790143

PATIENT
  Sex: Male

DRUGS (9)
  1. LEVOLEUCOVORIN CALCIUM [Concomitant]
     Indication: COLON CANCER RECURRENT
     Dosage: UNCERTAIN DOSAGE AND 13 COURSES
     Route: 041
  2. MAGMITT [Concomitant]
     Route: 048
  3. PRIMPERAN (JAPAN) [Concomitant]
     Route: 048
  4. AVASTIN [Suspect]
     Indication: COLON CANCER RECURRENT
     Dosage: UNCERTAIN DOSAGE AND 13 COURSES
     Route: 041
  5. FLUOROURACIL [Suspect]
     Indication: COLON CANCER RECURRENT
     Dosage: UNCERTAIN DOSAGE AND 13 COURSES
     Route: 041
  6. FLUOROURACIL [Suspect]
     Dosage: UNCERTAIN DOSAGE AND 13 COURSES, FORM:INTRAVENOUS BOLUS
     Route: 041
  7. SEROTONE [Concomitant]
     Route: 041
  8. OXALIPLATIN [Suspect]
     Indication: COLON CANCER RECURRENT
     Dosage: UNCERTAIN DOSAGE AND 13 COURSES
     Route: 041
  9. DECADRON [Concomitant]
     Route: 041

REACTIONS (3)
  - COLON CANCER RECURRENT [None]
  - PNEUMONIA [None]
  - STOMATITIS [None]
